FAERS Safety Report 7454463-8 (Version None)
Quarter: 2011Q1

REPORT INFORMATION
  Report Type: 
  Country: None (occurrence: None)
  Receive Date: 20110302
  Receipt Date: 20110113
  Transmission Date: 20110831
  Serious: No
  Sender: FDA-Public Use
  Company Number: 025665

PATIENT

DRUGS (1)
  1. CIMZIA [Suspect]

REACTIONS (1)
  - LUPUS-LIKE SYNDROME [None]
